FAERS Safety Report 4494560-2 (Version None)
Quarter: 2004Q4

REPORT INFORMATION
  Report Type: 
  Country: None (occurrence: None)
  Receive Date: 20041105
  Receipt Date: 20041019
  Transmission Date: 20050328
  Serious: Yes (Other)
  Sender: FDA-Public Use
  Company Number: CN-MERCK-0410CHN00033

PATIENT
  Age: 49 Year
  Sex: Female

DRUGS (5)
  1. VIOXX [Suspect]
     Indication: POST PROCEDURAL PAIN
     Route: 048
     Dates: start: 20040803, end: 20040101
  2. FENTANYL [Concomitant]
     Indication: POST PROCEDURAL PAIN
     Route: 061
  3. ACETAMINOPHEN AND PROPOXYPHENE NAPSYLATE [Concomitant]
     Indication: PAIN
     Route: 065
  4. INDOMETHACIN [Concomitant]
     Indication: PAIN
     Route: 065
  5. RED SAGE [Concomitant]
     Indication: PROPHYLAXIS
     Route: 065

REACTIONS (7)
  - BUNDLE BRANCH BLOCK RIGHT [None]
  - DYSPHORIA [None]
  - DYSPNOEA [None]
  - ELECTROCARDIOGRAM T WAVE ABNORMAL [None]
  - INSOMNIA [None]
  - NAUSEA [None]
  - VOMITING [None]
